FAERS Safety Report 8798877 (Version 1)
Quarter: 2012Q4

REPORT INFORMATION
  Report Type: Report from Study
  Country: GB (occurrence: GB)
  Receive Date: 20120920
  Receipt Date: 20120920
  Transmission Date: 20130627
  Serious: Yes (Other)
  Sender: FDA-Public Use
  Company Number: GB-GLAXOSMITHKLINE-B0831609A

PATIENT
  Age: 39 Year
  Sex: Male

DRUGS (17)
  1. NELARABINE [Suspect]
     Indication: ACUTE LYMPHOCYTIC LEUKAEMIA
     Dosage: 3000MG per day
     Dates: start: 20110321, end: 20110422
  2. ONDANSETRON [Concomitant]
     Route: 048
  3. CO-TRIMOXAZOLE [Concomitant]
     Route: 048
  4. ACYCLOVIR [Concomitant]
     Route: 048
  5. GENTAMICIN [Concomitant]
     Route: 042
  6. MEROPENEM [Concomitant]
     Route: 042
  7. PIRITON [Concomitant]
  8. PARACETAMOL [Concomitant]
  9. METOCLOPRAMIDE [Concomitant]
  10. NYSTATIN [Concomitant]
  11. OMEPRAZOLE [Concomitant]
  12. MORPHINE [Concomitant]
  13. TRAMADOL [Concomitant]
  14. CODEINE [Concomitant]
  15. ANUSOL [Concomitant]
  16. G-CSF [Concomitant]
  17. MOVICOL [Concomitant]

REACTIONS (1)
  - Aspartate aminotransferase increased [Recovered/Resolved]
